FAERS Safety Report 17155729 (Version 1)
Quarter: 2019Q4

REPORT INFORMATION
  Report Type: Spontaneous
  Country: US (occurrence: US)
  Receive Date: 20191215
  Receipt Date: 20191215
  Transmission Date: 20200122
  Serious: No
  Sender: FDA-Public Use
  Company Number: NVSC2019US015915

PATIENT
  Age: 41 Year
  Sex: Female

DRUGS (3)
  1. PHENTOLAMINE [Suspect]
     Active Substance: PHENTOLAMINE
     Indication: ERYTHROMELALGIA
     Dosage: UNK
     Route: 042
  2. KETAMINE [Suspect]
     Active Substance: KETAMINE
     Indication: ERYTHROMELALGIA
     Dosage: UNK
     Route: 042
  3. MEXILETINE [Suspect]
     Active Substance: MEXILETINE
     Indication: ERYTHROMELALGIA
     Dosage: UNK
     Route: 065

REACTIONS (1)
  - Drug ineffective for unapproved indication [Unknown]
